FAERS Safety Report 4621565-0 (Version None)
Quarter: 2005Q1

REPORT INFORMATION
  Report Type: 
  Country: None (occurrence: None)
  Receive Date: 20050328
  Receipt Date: 20040616
  Transmission Date: 20050727
  Serious: No
  Sender: FDA-Public Use
  Company Number: 8272

PATIENT
  Age: 78 Year
  Sex: Female

DRUGS (2)
  1. AMIODARONE [Suspect]
     Dosage: 450 MG
     Route: 042
  2. AMIODARONE [Suspect]
     Dosage: 200 MG ONCE
     Route: 048

REACTIONS (5)
  - BRADYCARDIA [None]
  - ELECTROCARDIOGRAM QT PROLONGED [None]
  - HYPOKALAEMIA [None]
  - TORSADE DE POINTES [None]
  - VENTRICULAR FIBRILLATION [None]
